FAERS Safety Report 23395896 (Version 1)
Quarter: 2024Q1

REPORT INFORMATION
  Report Type: Spontaneous
  Country: CA (occurrence: CA)
  Receive Date: 20240112
  Receipt Date: 20240112
  Transmission Date: 20240410
  Serious: Yes (Death, Other)
  Sender: FDA-Public Use
  Company Number: CA-DRL-USA-SPO/CAN/24/0000379

PATIENT
  Sex: Male

DRUGS (12)
  1. LENALIDOMIDE [Suspect]
     Active Substance: LENALIDOMIDE
     Indication: Plasma cell myeloma refractory
     Route: 048
  2. LENALIDOMIDE [Suspect]
     Active Substance: LENALIDOMIDE
     Indication: Plasma cell myeloma refractory
     Route: 048
  3. LENALIDOMIDE [Suspect]
     Active Substance: LENALIDOMIDE
     Route: 048
  4. DEXAMETHASONE [Suspect]
     Active Substance: DEXAMETHASONE
     Indication: Light chain disease
  5. DEXAMETHASONE [Suspect]
     Active Substance: DEXAMETHASONE
  6. DEXAMETHASONE [Suspect]
     Active Substance: DEXAMETHASONE
  7. DEXAMETHASONE [Suspect]
     Active Substance: DEXAMETHASONE
  8. NINLARO [Suspect]
     Active Substance: IXAZOMIB CITRATE
     Indication: Product used for unknown indication
  9. NINLARO [Suspect]
     Active Substance: IXAZOMIB CITRATE
  10. NINLARO [Suspect]
     Active Substance: IXAZOMIB CITRATE
  11. NINLARO [Suspect]
     Active Substance: IXAZOMIB CITRATE
  12. NINLARO [Suspect]
     Active Substance: IXAZOMIB CITRATE

REACTIONS (15)
  - Acute kidney injury [Fatal]
  - Anaemia [Fatal]
  - Aspiration [Fatal]
  - Condition aggravated [Fatal]
  - Herpes zoster [Fatal]
  - Infection [Fatal]
  - Insomnia [Fatal]
  - Malignant neoplasm progression [Fatal]
  - Pneumonia [Fatal]
  - Post procedural haemorrhage [Fatal]
  - Renal impairment [Fatal]
  - Trigeminal neuralgia [Fatal]
  - Plasma cell myeloma refractory [Fatal]
  - Product substitution issue [Unknown]
  - Therapy non-responder [Unknown]
